FAERS Safety Report 7245525-9 (Version None)
Quarter: 2011Q1

REPORT INFORMATION
  Report Type: 
  Country: None (occurrence: None)
  Receive Date: 20110118
  Receipt Date: 20110105
  Transmission Date: 20110831
  Serious: Yes (Hospitalization)
  Sender: FDA-Public Use
  Company Number: IDA-00484

PATIENT
  Sex: Female

DRUGS (6)
  1. EFFEXOR [Concomitant]
  2. DEPAKOTE [Concomitant]
  3. PROPRANOLOL [Suspect]
     Indication: SELF-MEDICATION
     Dosage: 1600 MG SINGLE ADMINISTRATION, ORAL FORMULATION: TABLET
     Route: 048
     Dates: start: 20100704, end: 20100704
  4. EQUANIL [Suspect]
     Indication: SELF-MEDICATION
     Dosage: ONCE/SINGLE ADMINISTRATION, ORAL FORMULATION
     Route: 048
     Dates: start: 20100704, end: 20100704
  5. IMOVANE (ZOPICLONE) [Concomitant]
  6. ABILIFY [Concomitant]

REACTIONS (4)
  - OXYGEN SATURATION DECREASED [None]
  - DRUG LEVEL INCREASED [None]
  - INTENTIONAL OVERDOSE [None]
  - BLOOD PRESSURE DECREASED [None]
